FAERS Safety Report 5144429-5 (Version None)
Quarter: 2006Q4

REPORT INFORMATION
  Report Type: 
  Country: None (occurrence: None)
  Receive Date: 20061031
  Receipt Date: 20061018
  Transmission Date: 20070319
  Serious: Yes (Life-Threatening)
  Sender: FDA-Public Use
  Company Number: 2006129918

PATIENT
  Age: 9 Year
  Sex: Female

DRUGS (4)
  1. SULPERAZON (SULBACTAM, CEFOPERAZONE) [Suspect]
     Indication: PNEUMONIA
     Dosage: 2 GRAM, INTRAVENOUS
     Route: 042
     Dates: start: 20061008, end: 20061015
  2. SULPERAZON (SULBACTAM, CEFOPERAZONE) [Suspect]
     Indication: PYREXIA
     Dosage: 2 GRAM, INTRAVENOUS
     Route: 042
     Dates: start: 20061008, end: 20061015
  3. ROCEPHIN [Concomitant]
  4. CEFAZOLIN SODIUM [Concomitant]

REACTIONS (3)
  - LYMPHOCYTE STIMULATION TEST POSITIVE [None]
  - RESPIRATORY DISORDER [None]
  - THERAPY NON-RESPONDER [None]
